FAERS Safety Report 23746863 (Version 1)
Quarter: 2024Q2

REPORT INFORMATION
  Report Type: Spontaneous
  Country: US (occurrence: None)
  Receive Date: 20240415
  Receipt Date: 20240415
  Transmission Date: 20240716
  Serious: No
  Sender: FDA-Public Use
  Company Number: None

PATIENT
  Age: 46 Year
  Sex: Female
  Weight: 69.75 kg

DRUGS (1)
  1. .DELTA.8-TETRAHYDROCANNABIPHOROL\HERBALS [Suspect]
     Active Substance: .DELTA.8-TETRAHYDROCANNABIPHOROL\HERBALS
     Indication: Sleep disorder
     Dosage: OTHER FREQUENCY : ONCE;?
     Route: 048
     Dates: start: 20240414, end: 20240414

REACTIONS (6)
  - Dizziness [None]
  - Dyspnoea [None]
  - Confusional state [None]
  - Chills [None]
  - Muscular weakness [None]
  - Muscle twitching [None]

NARRATIVE: CASE EVENT DATE: 20240414
